FAERS Safety Report 16429328 (Version 1)
Quarter: 2019Q2

REPORT INFORMATION
  Report Type: Spontaneous
  Country: DE (occurrence: DE)
  Receive Date: 20190614
  Receipt Date: 20190614
  Transmission Date: 20190711
  Serious: Yes (Disabling)
  Sender: FDA-Public Use
  Company Number: DE-DRREDDYS-GER/GER/19/0110894

PATIENT
  Age: 70 Year
  Sex: Female

DRUGS (1)
  1. METOPROLOL. [Suspect]
     Active Substance: METOPROLOL
     Indication: BLOOD PRESSURE MEASUREMENT
     Dosage: 1/2 IN THE MORNING, 1/2 IN THE EVENING
     Dates: start: 2017

REACTIONS (14)
  - Apathy [Unknown]
  - Peripheral swelling [Unknown]
  - Vision blurred [Unknown]
  - Impaired quality of life [Unknown]
  - Limb discomfort [Unknown]
  - Malaise [Unknown]
  - Bone disorder [Unknown]
  - Muscle discomfort [Unknown]
  - Ocular discomfort [Unknown]
  - Lymphatic disorder [Unknown]
  - Joint swelling [Unknown]
  - Abdominal discomfort [Unknown]
  - Head discomfort [Unknown]
  - Fatigue [Unknown]
